FAERS Safety Report 12153493 (Version 1)
Quarter: 2016Q1

REPORT INFORMATION
  Report Type: Spontaneous
  Country: BR (occurrence: BR)
  Receive Date: 20160306
  Receipt Date: 20160306
  Transmission Date: 20160526
  Serious: Yes (Life-Threatening, Other)
  Sender: FDA-Public Use
  Company Number: BR-ELI_LILLY_AND_COMPANY-BR201602010161

PATIENT
  Age: 0 Year
  Weight: 3.32 kg

DRUGS (2)
  1. HUMULIN R [Suspect]
     Active Substance: INSULIN HUMAN
     Indication: TYPE 1 DIABETES MELLITUS
     Dosage: UNK IU, TID
     Route: 058
     Dates: start: 2012
  2. HUMULIN N [Suspect]
     Active Substance: INSULIN HUMAN
     Indication: TYPE 1 DIABETES MELLITUS
     Dosage: 38 IU, BID
     Route: 065
     Dates: start: 2008

REACTIONS (7)
  - Asthenia [Unknown]
  - Premature baby [Unknown]
  - Exposure during pregnancy [Unknown]
  - Cardiac arrest neonatal [Recovered/Resolved]
  - Foetal distress syndrome [Recovered/Resolved]
  - Large for dates baby [Unknown]
  - Exposure during breast feeding [Unknown]

NARRATIVE: CASE EVENT DATE: 201512
